FAERS Safety Report 13746510 (Version 3)
Quarter: 2017Q3

REPORT INFORMATION
  Report Type: Spontaneous
  Country: CH (occurrence: CH)
  Receive Date: 20170712
  Receipt Date: 20170817
  Transmission Date: 20171127
  Serious: Yes (Other)
  Sender: FDA-Public Use
  Company Number: CH-PFIZER INC-2017295456

PATIENT
  Age: 76 Year
  Sex: Female
  Weight: 55 kg

DRUGS (15)
  1. WELLBUTRIN XL [Concomitant]
     Active Substance: BUPROPION HYDROCHLORIDE
     Dosage: 150 MG, UNK
     Dates: start: 20161108, end: 20161207
  2. WELLBUTRIN XL [Concomitant]
     Active Substance: BUPROPION HYDROCHLORIDE
     Dosage: 150 MG, UNK
     Dates: start: 20161220, end: 20170319
  3. TRANSIPEG /01618701/ [Concomitant]
     Active Substance: POLYETHYLENE GLYCOL 3350\POTASSIUM CHLORIDE\SODIUM BICARBONATE\SODIUM CHLORIDE\SODIUM SULFATE ANHYDROUS
     Dosage: UNK
     Dates: start: 20170329
  4. SERALIN MEPHA [Concomitant]
     Active Substance: SERTRALINE HYDROCHLORIDE
     Dosage: 50 MG, UNK
     Dates: start: 20170104, end: 20170120
  5. TEMESTA [Suspect]
     Active Substance: LORAZEPAM
     Dosage: 2 MG, UNK
     Dates: start: 20170328, end: 20170330
  6. QUILONORM /00033702/ [Suspect]
     Active Substance: LITHIUM CARBONATE
     Dosage: 675 MG, UNK
     Dates: start: 20170221, end: 20170330
  7. VALDOXAN [Suspect]
     Active Substance: AGOMELATINE
     Dosage: 50 MG, UNK
     Dates: start: 20161222, end: 20170329
  8. VITARUBIN /00056201/ [Concomitant]
     Dosage: UNK
     Dates: start: 20161108, end: 20170205
  9. QUILONORM /00033702/ [Suspect]
     Active Substance: LITHIUM CARBONATE
     Dosage: 450 MG, UNK
     Dates: start: 20170210, end: 20170220
  10. PANTOPRAZOL MEPHA [Suspect]
     Active Substance: PANTOPRAZOLE SODIUM
     Dosage: 40 MG, UNK
     Dates: start: 20170317, end: 20170404
  11. VALDOXAN [Suspect]
     Active Substance: AGOMELATINE
     Dosage: 25 MG, UNK
     Dates: start: 20160727, end: 20161221
  12. BRINTELLIX [Concomitant]
     Active Substance: VORTIOXETINE HYDROBROMIDE
     Dosage: 5 MG, UNK
     Dates: start: 20170328, end: 20170330
  13. PANTOZOL [Concomitant]
     Active Substance: PANTOPRAZOLE SODIUM
     Dosage: 40 MG, UNK
     Dates: start: 20170316, end: 20170404
  14. QUILONORM /00033702/ [Suspect]
     Active Substance: LITHIUM CARBONATE
     Dosage: 225 MG, UNK
     Dates: start: 20170206, end: 20170209
  15. WELLBUTRIN XL [Concomitant]
     Active Substance: BUPROPION HYDROCHLORIDE
     Dosage: 300 MG, UNK
     Dates: start: 20161208, end: 20161219

REACTIONS (6)
  - Confusional state [Recovered/Resolved]
  - Disorientation [Recovered/Resolved]
  - Agitation [Recovered/Resolved]
  - Hallucination [Recovered/Resolved]
  - Delirium [Recovered/Resolved]
  - Insomnia [Recovered/Resolved]

NARRATIVE: CASE EVENT DATE: 20170329
